FAERS Safety Report 10388167 (Version 1)
Quarter: 2014Q3

REPORT INFORMATION
  Report Type: Spontaneous
  Country: US (occurrence: US)
  Receive Date: 20140815
  Receipt Date: 20140815
  Transmission Date: 20150326
  Serious: Yes (Other)
  Sender: FDA-Public Use
  Company Number: US-GLAXOSMITHKLINE-A1084342A

PATIENT
  Age: 70 Year
  Sex: Female

DRUGS (11)
  1. METOPROLOL [Concomitant]
     Active Substance: METOPROLOL
  2. REQUIP [Concomitant]
     Active Substance: ROPINIROLE HYDROCHLORIDE
  3. LEVOTHYROXINE [Concomitant]
     Active Substance: LEVOTHYROXINE
  4. ACID REFLUX MED. [Concomitant]
  5. HYZAAR [Concomitant]
     Active Substance: HYDROCHLOROTHIAZIDE\LOSARTAN POTASSIUM
  6. CATAPRES [Concomitant]
     Active Substance: CLONIDINE HYDROCHLORIDE
  7. NEBULIZER [Concomitant]
     Active Substance: UNSPECIFIED INGREDIENT
  8. ADVAIR HFA [Suspect]
     Active Substance: FLUTICASONE PROPIONATE\SALMETEROL XINAFOATE
     Indication: ASTHMA
     Dosage: 1PUFF TWICE PER DAY
     Route: 055
  9. PROAIR HFA [Concomitant]
     Active Substance: ALBUTEROL SULFATE
  10. SINGULAIR [Concomitant]
     Active Substance: MONTELUKAST SODIUM
  11. VITAMINS [Concomitant]
     Active Substance: VITAMINS

REACTIONS (2)
  - Intraocular lens implant [Unknown]
  - Cataract [Unknown]

NARRATIVE: CASE EVENT DATE: 20140731
